FAERS Safety Report 10168420 (Version 2)
Quarter: 2014Q2

REPORT INFORMATION
  Report Type: Spontaneous
  Country: US (occurrence: US)
  Receive Date: 20140513
  Receipt Date: 20140523
  Transmission Date: 20141212
  Serious: Yes (Other)
  Sender: FDA-Public Use
  Company Number: US-BEH-2014042395

PATIENT
  Age: 40 Year
  Sex: Female
  Weight: 89 kg

DRUGS (29)
  1. PRIVIGEN [Suspect]
     Indication: IMMUNODEFICIENCY COMMON VARIABLE
     Route: 042
     Dates: start: 20140406, end: 20140413
  2. PRIVIGEN [Suspect]
     Route: 042
     Dates: start: 20140406, end: 20140413
  3. ACETAMINOPHEN [Concomitant]
  4. DIPHENHYDRAMINE [Concomitant]
  5. SODIUM CHLORIDE [Concomitant]
  6. HEPARIN [Concomitant]
     Dosage: 10 UNITS/ML
  7. DOXYCYCLINE HYCLATE [Concomitant]
  8. EPI PEN [Concomitant]
  9. BACLOFEN [Concomitant]
  10. MONURAL [Concomitant]
  11. CYANOCOBALAMIN [Concomitant]
     Dosage: 10000 MCG/ML
  12. AVELOX [Concomitant]
  13. ANTIVERT [Concomitant]
  14. AZITHROMYCIN [Concomitant]
  15. TEGRETOL [Concomitant]
  16. SYNTHROID [Concomitant]
  17. FENOFIBRATE [Concomitant]
  18. PRILOSEC [Concomitant]
  19. BENTYL [Concomitant]
  20. VITAMIN D3 [Concomitant]
  21. LASIX [Concomitant]
  22. POTASSIUM CL ER [Concomitant]
  23. TRAMADOL HCL [Concomitant]
  24. GABAPENTIN [Concomitant]
  25. FLONASE [Concomitant]
  26. VENTOLIN HFA [Concomitant]
  27. LOVAZA [Concomitant]
  28. SYMBICORT [Concomitant]
     Dosage: 160-4.5 MCG
  29. FLINTSTONES IRON [Concomitant]

REACTIONS (1)
  - Sepsis [Unknown]
